FAERS Safety Report 23853321 (Version 1)
Quarter: 2024Q2

REPORT INFORMATION
  Report Type: Spontaneous
  Country: US (occurrence: US)
  Receive Date: 20240514
  Receipt Date: 20240514
  Transmission Date: 20240716
  Serious: Yes (Hospitalization)
  Sender: FDA-Public Use
  Company Number: US-MYLANLABS-2024M1042533

PATIENT
  Age: 6 Decade
  Sex: Female

DRUGS (11)
  1. FLUOXETINE [Suspect]
     Active Substance: FLUOXETINE HYDROCHLORIDE
     Indication: Major depression
     Dosage: 20 MILLIGRAM, QD
     Route: 065
  2. FLUOXETINE [Suspect]
     Active Substance: FLUOXETINE HYDROCHLORIDE
     Indication: Post-traumatic stress disorder
     Dosage: 30 MILLIGRAM, QD
     Route: 065
  3. FLUOXETINE [Suspect]
     Active Substance: FLUOXETINE HYDROCHLORIDE
     Dosage: 20 MILLIGRAM, QD (DRUG WITHDRAWN DUE TO ADR AND LATER RESTARTED)
     Route: 065
  4. ARIPIPRAZOLE [Suspect]
     Active Substance: ARIPIPRAZOLE
     Indication: Major depression
     Dosage: 20 MILLIGRAM, QD
     Route: 065
  5. ARIPIPRAZOLE [Suspect]
     Active Substance: ARIPIPRAZOLE
     Dosage: 2 MILLIGRAM, QD, SLOWLY TAPPERED
     Route: 065
  6. TRAZODONE [Suspect]
     Active Substance: TRAZODONE HYDROCHLORIDE
     Indication: Insomnia
     Dosage: 50 MILLIGRAM, HS, AT BEDTIME
     Route: 065
  7. TRAZODONE [Suspect]
     Active Substance: TRAZODONE HYDROCHLORIDE
     Dosage: 50 MILLIGRAM, HS, AT BEDTIME (LATER RESTARTED)
     Route: 065
  8. PRAZOSIN [Suspect]
     Active Substance: PRAZOSIN
     Indication: Post-traumatic stress disorder
     Dosage: 1 MILLIGRAM, HS, AT BEDTIME
     Route: 065
  9. PRAZOSIN [Suspect]
     Active Substance: PRAZOSIN
     Dosage: 2 MILLIGRAM, HS, AT BEDTIME
     Route: 065
  10. PRAZOSIN [Suspect]
     Active Substance: PRAZOSIN
     Dosage: INCREASED TO 1MG TWICE DAILY AND 2MG AT BEDTIME
     Route: 065
  11. PRIMIDONE [Concomitant]
     Active Substance: PRIMIDONE
     Indication: Tremor
     Dosage: 100 MILLIGRAM, BID
     Route: 065

REACTIONS (3)
  - Somnolence [Unknown]
  - Off label use [Unknown]
  - Tremor [Unknown]
